FAERS Safety Report 8564472-3 (Version None)
Quarter: 2012Q3

REPORT INFORMATION
  Report Type: 
  Country: None (occurrence: None)
  Receive Date: 20120803
  Receipt Date: 20120727
  Transmission Date: 20120928
  Serious: Yes (Other)
  Sender: FDA-Public Use
  Company Number: NO-JNJFOC-20120613141

PATIENT
  Sex: Female

DRUGS (5)
  1. LOCOID [Suspect]
     Indication: PRODUCT USED FOR UNKNOWN INDICATION
     Route: 061
  2. WARFARIN SODIUM [Concomitant]
     Route: 065
  3. DAKTACORT [Suspect]
     Indication: PRODUCT USED FOR UNKNOWN INDICATION
     Route: 061
  4. DAKTACORT [Suspect]
     Route: 061
  5. DIPROSALIC [Suspect]
     Indication: PRODUCT USED FOR UNKNOWN INDICATION
     Route: 061

REACTIONS (1)
  - INTERNATIONAL NORMALISED RATIO INCREASED [None]
